FAERS Safety Report 8313733-1 (Version None)
Quarter: 2012Q2

REPORT INFORMATION
  Report Type: 
  Country: None (occurrence: None)
  Receive Date: 20120426
  Receipt Date: 20120420
  Transmission Date: 20120825
  Serious: Yes (Other)
  Sender: FDA-Public Use
  Company Number: PHEH2012US008474

PATIENT
  Sex: Female

DRUGS (8)
  1. COLESTIPOL HYDROCHLORIDE [Concomitant]
     Dosage: UNK UKN, UNK
  2. TORSEMIDE [Concomitant]
     Dosage: 20 MG, UNK
  3. ASPIRIN [Concomitant]
  4. METANAX [Concomitant]
     Dosage: UNK UKN, UNK
  5. POTASSIUM CHLORIDE [Concomitant]
     Dosage: UNK UKN, UNK
  6. TRILIPIX [Concomitant]
     Dosage: UNK UKN, UNK
  7. FLEXERIL [Concomitant]
     Dosage: UNK UKN, UNK
  8. VALTURNA [Suspect]
     Dosage: 300/320 MG, QD
     Dates: end: 20120406

REACTIONS (1)
  - CEREBROVASCULAR ACCIDENT [None]
